FAERS Safety Report 13658724 (Version 1)
Quarter: 2017Q2

REPORT INFORMATION
  Report Type: Report from Study
  Country: BR (occurrence: BR)
  Receive Date: 20170616
  Receipt Date: 20170616
  Transmission Date: 20170830
  Serious: Yes (Hospitalization, Other)
  Sender: FDA-Public Use
  Company Number: BR-UCBSA-2017022970

PATIENT
  Sex: Female
  Weight: 63 kg

DRUGS (5)
  1. CYMBI [Concomitant]
     Indication: NERVOUS SYSTEM DISORDER
     Dosage: UNK
     Route: 048
  2. CERTOLIZUMAB PEGOL [Suspect]
     Active Substance: CERTOLIZUMAB PEGOL
     Indication: RHEUMATOID ARTHRITIS
     Dosage: 200 MG, MONTHLY (QM)
  3. CERTOLIZUMAB PEGOL [Suspect]
     Active Substance: CERTOLIZUMAB PEGOL
     Dosage: 200 MG, EV 15 DAYS
  4. LEXOTAN [Concomitant]
     Active Substance: BROMAZEPAM
     Indication: NERVOUS SYSTEM DISORDER
     Dosage: 6 MG, ONCE DAILY (QD)
     Route: 048
     Dates: start: 1977
  5. CERTOLIZUMAB PEGOL [Suspect]
     Active Substance: CERTOLIZUMAB PEGOL
     Dosage: 400 MG, EV 15 DAYS
     Dates: end: 201701

REACTIONS (10)
  - Paraplegia [Not Recovered/Not Resolved]
  - Intentional product misuse [Unknown]
  - Intervertebral disc protrusion [Recovering/Resolving]
  - Neck pain [Recovered/Resolved]
  - Anaemia [Not Recovered/Not Resolved]
  - Off label use [Unknown]
  - Pain in extremity [Not Recovered/Not Resolved]
  - Herpes virus infection [Unknown]
  - Cervical vertebral fracture [Recovered/Resolved]
  - Musculoskeletal pain [Not Recovered/Not Resolved]

NARRATIVE: CASE EVENT DATE: 2016
